FAERS Safety Report 5981852-0 (Version None)
Quarter: 2008Q4

REPORT INFORMATION
  Report Type: 
  Country: None (occurrence: None)
  Receive Date: 20081202
  Receipt Date: 20081118
  Transmission Date: 20090506
  Serious: Yes (Hospitalization, Other)
  Sender: FDA-Public Use
  Company Number: KV200800307

PATIENT
  Age: 51 Year
  Sex: Female
  Weight: 90.7 kg

DRUGS (4)
  1. ISOSORBIDE MONONITRATE         (ISOSOBIDE MONONITRATE)  60 MG [Suspect]
     Indication: ISCHAEMIC HEART DISEASE PROPHYLAXIS
     Dosage: 60 MG, 1 TABLET, QD, ORAL
     Route: 048
     Dates: start: 19990101
  2. LASIX [Concomitant]
  3. POTASSIUM         (POTASSIUM) [Concomitant]
  4. NOS CARDIAC MEDS [Concomitant]

REACTIONS (5)
  - FLUID RETENTION [None]
  - HYPERTENSION [None]
  - MYOCARDIAL INFARCTION [None]
  - PNEUMONIA [None]
  - PRODUCT QUALITY ISSUE [None]
